FAERS Safety Report 6277487-5 (Version None)
Quarter: 2009Q3

REPORT INFORMATION
  Report Type: 
  Country: None (occurrence: None)
  Receive Date: 20090722
  Receipt Date: 20090713
  Transmission Date: 20100115
  Serious: Yes (Other)
  Sender: FDA-Public Use
  Company Number: GB-JNJFOC-20090603345

PATIENT
  Sex: Male

DRUGS (5)
  1. REMICADE [Suspect]
     Indication: COLITIS ULCERATIVE
     Dosage: FIRST INFUSION
     Route: 042
  2. HYDROCORTISONE [Concomitant]
     Indication: PREMEDICATION
     Route: 042
  3. AZATHIOPRINE [Concomitant]
  4. BALSALAZIDE [Concomitant]
  5. PREDNISOLONE [Concomitant]

REACTIONS (6)
  - CONFUSIONAL STATE [None]
  - DEPRESSION [None]
  - HYPERSOMNIA [None]
  - PYREXIA [None]
  - TREMOR [None]
  - TYPE IV HYPERSENSITIVITY REACTION [None]
